FAERS Safety Report 5657459-1 (Version None)
Quarter: 2008Q1

REPORT INFORMATION
  Report Type: 
  Country: None (occurrence: None)
  Receive Date: 20080310
  Receipt Date: 20080227
  Transmission Date: 20080703
  Serious: Yes (Death, Hospitalization)
  Sender: FDA-Public Use
  Company Number: FR-ELI_LILLY_AND_COMPANY-FR200802006197

PATIENT
  Sex: Male

DRUGS (7)
  1. PROZAC [Suspect]
     Indication: DEPRESSION
     Dosage: 20 MG, DAILY (1/D)
     Route: 048
  2. KARDEGIC [Concomitant]
     Dosage: 75 MG, DAILY (1/D)
     Route: 048
     Dates: start: 20071201, end: 20080120
  3. ZOCOR [Concomitant]
     Dosage: 20 MG, DAILY (1/D)
     Route: 048
  4. INDAPAMIDE [Concomitant]
     Dosage: 1.5 MG, DAILY (1/D)
     Route: 048
  5. LERCAN [Concomitant]
     Dosage: 10 MG, DAILY (1/D)
     Route: 048
  6. MODOPAR [Concomitant]
     Dosage: 3 D/F, DAILY (1/D)
     Route: 048
  7. COVERSYL [Concomitant]
     Dosage: 2 MG, DAILY (1/D)
     Route: 048

REACTIONS (5)
  - ANAEMIA [None]
  - COMA [None]
  - GASTRODUODENAL ULCER [None]
  - MALAISE [None]
  - MELAENA [None]
